FAERS Safety Report 8799642 (Version 1)
Quarter: 2012Q4

REPORT INFORMATION
  Report Type: Spontaneous
  Country: US (occurrence: None)
  Receive Date: 20120918
  Receipt Date: 20120918
  Transmission Date: 20130627
  Serious: No
  Sender: FDA-Public Use
  Company Number: None

PATIENT
  Age: 77 Year
  Sex: Male

DRUGS (14)
  1. LETAIRIS [Suspect]
     Indication: PULMONARY HYPERTENSION
     Route: 048
     Dates: start: 200912, end: 201208
  2. COUMADIN [Concomitant]
  3. LASIX [Concomitant]
  4. KEPPRA [Concomitant]
  5. LORTAB [Concomitant]
  6. LOPRESSOR [Concomitant]
  7. HALDOL [Concomitant]
  8. SEROQUEL [Concomitant]
  9. CULTRUELLE [Concomitant]
  10. ZITHROMAX [Concomitant]
  11. KEFLEX [Concomitant]
  12. COLACE [Concomitant]
  13. DUCOLAX [Concomitant]
  14. MVI [Concomitant]

REACTIONS (2)
  - Right ventricular failure [None]
  - Refusal of treatment by patient [None]
